FAERS Safety Report 13344349 (Version 2)
Quarter: 2017Q2

REPORT INFORMATION
  Report Type: Report from Study
  Country: JP (occurrence: JP)
  Receive Date: 20170317
  Receipt Date: 20170609
  Transmission Date: 20170830
  Serious: Yes (Death, Other)
  Sender: FDA-Public Use
  Company Number: JP-ALXN-A201700548AA

PATIENT
  Age: 70 Year
  Sex: Female
  Weight: 54 kg

DRUGS (11)
  1. CARVEDILOL. [Concomitant]
     Active Substance: CARVEDILOL
     Indication: ESSENTIAL HYPERTENSION
     Dosage: 2.5 MG, QD
     Route: 048
     Dates: start: 20160831, end: 20160902
  2. SOLIRIS [Suspect]
     Active Substance: ECULIZUMAB
     Indication: HAEMOLYTIC URAEMIC SYNDROME
     Dosage: 900 MG, QW
     Route: 042
     Dates: start: 20161126, end: 20161216
  3. SOLIRIS [Suspect]
     Active Substance: ECULIZUMAB
     Dosage: 1200 MG, Q2W
     Route: 042
     Dates: start: 20161224, end: 20170106
  4. PREDONINE [Concomitant]
     Active Substance: PREDNISOLONE
     Indication: SYSTEMIC LUPUS ERYTHEMATOSUS
     Dosage: 50 MG, DAILY
     Route: 048
     Dates: start: 20160715
  5. PREDONINE [Concomitant]
     Active Substance: PREDNISOLONE
     Indication: HAEMOLYTIC URAEMIC SYNDROME
     Dosage: 10 MG, QD
     Route: 048
     Dates: start: 20160715
  6. SAMSCA [Concomitant]
     Active Substance: TOLVAPTAN
     Indication: PRODUCT USED FOR UNKNOWN INDICATION
     Dosage: 7.5 MG, QD
     Route: 048
     Dates: start: 20160821, end: 20170219
  7. OLMETEC [Concomitant]
     Active Substance: OLMESARTAN MEDOXOMIL
     Indication: ESSENTIAL HYPERTENSION
     Dosage: 40 MG, QD
     Route: 048
     Dates: start: 20160517, end: 20160825
  8. ASPIRIN                            /00002701/ [Concomitant]
     Active Substance: ASPIRIN
     Indication: ANGINA PECTORIS
     Dosage: 100 MG, QD
     Route: 048
     Dates: start: 20160517, end: 20160901
  9. SEPAMIT-R [Concomitant]
     Active Substance: NIFEDIPINE
     Indication: ESSENTIAL HYPERTENSION
     Dosage: 10 MG, BID
     Route: 048
     Dates: start: 20160911, end: 20170123
  10. NICORANDIL [Concomitant]
     Active Substance: NICORANDIL
     Indication: ESSENTIAL HYPERTENSION
     Dosage: 5 MG, TID
     Route: 048
     Dates: start: 20160517, end: 20160908
  11. AMLODIPINE [Concomitant]
     Active Substance: AMLODIPINE BESYLATE
     Indication: PRODUCT USED FOR UNKNOWN INDICATION
     Dosage: 7.5 MG, QD
     Route: 048
     Dates: start: 20160516, end: 20170219

REACTIONS (2)
  - Leukoencephalopathy [Not Recovered/Not Resolved]
  - Gastrointestinal haemorrhage [Fatal]

NARRATIVE: CASE EVENT DATE: 20170218
